FAERS Safety Report 7334780-2 (Version None)
Quarter: 2011Q1

REPORT INFORMATION
  Report Type: 
  Country: None (occurrence: None)
  Receive Date: 20110222
  Receipt Date: 20110208
  Transmission Date: 20110831
  Serious: Yes (Other)
  Sender: FDA-Public Use
  Company Number: DSA_44944_2011

PATIENT
  Sex: Female

DRUGS (2)
  1. WELLBUTRIN XL [Suspect]
     Indication: DEPRESSION
     Dosage: 150 MG, QD, ORAL
     Route: 048
     Dates: start: 20101214, end: 20110113
  2. PAXIL [Suspect]
     Indication: DEPRESSION
     Dosage: 25 MG, QD, ORAL
     Route: 048
     Dates: start: 20101214, end: 20110113

REACTIONS (5)
  - TONGUE BITING [None]
  - AMNESIA [None]
  - INCONTINENCE [None]
  - MYALGIA [None]
  - GRAND MAL CONVULSION [None]
